FAERS Safety Report 14582120 (Version 1)
Quarter: 2018Q1

REPORT INFORMATION
  Report Type: Spontaneous
  Country: FR (occurrence: FR)
  Receive Date: 20180228
  Receipt Date: 20180228
  Transmission Date: 20180509
  Serious: Yes (Life-Threatening, Hospitalization)
  Sender: FDA-Public Use
  Company Number: FR-TEVA-2018-FR-860405

PATIENT
  Age: 57 Year
  Sex: Male
  Weight: 155 kg

DRUGS (6)
  1. EXFORGE [Suspect]
     Active Substance: AMLODIPINE BESYLATE\VALSARTAN
     Indication: SUICIDE ATTEMPT
     Route: 048
     Dates: start: 20171117, end: 20171117
  2. THERALENE [Suspect]
     Active Substance: TRIMEPRAZINE
     Indication: SUICIDE ATTEMPT
     Route: 048
     Dates: start: 20171117, end: 20171117
  3. ALPRAZOLAM. [Suspect]
     Active Substance: ALPRAZOLAM
     Indication: SUICIDE ATTEMPT
     Route: 048
     Dates: start: 20171117, end: 20171117
  4. LOVENOX [Concomitant]
     Active Substance: ENOXAPARIN SODIUM
     Indication: THROMBOSIS PROPHYLAXIS
     Dosage: 4000 IU (INTERNATIONAL UNIT) DAILY;
     Route: 058
  5. ARTANE [Suspect]
     Active Substance: TRIHEXYPHENIDYL HYDROCHLORIDE
     Indication: SUICIDE ATTEMPT
     Route: 048
     Dates: start: 20171117, end: 20171117
  6. RISPERDAL [Suspect]
     Active Substance: RISPERIDONE
     Indication: SUICIDE ATTEMPT
     Route: 048
     Dates: start: 20171117, end: 20171117

REACTIONS (3)
  - Haemodynamic instability [Recovered/Resolved]
  - Suicide attempt [None]
  - Coma [Recovered/Resolved]

NARRATIVE: CASE EVENT DATE: 20171118
